FAERS Safety Report 14782936 (Version 3)
Quarter: 2018Q2

REPORT INFORMATION
  Report Type: Report from Study
  Country: JP (occurrence: JP)
  Receive Date: 20180420
  Receipt Date: 20180511
  Transmission Date: 20180711
  Serious: Yes (Hospitalization)
  Sender: FDA-Public Use
  Company Number: JP-ROCHE-1421193

PATIENT
  Age: 71 Year
  Sex: Female
  Weight: 31 kg

DRUGS (64)
  1. TAKEPRON [Concomitant]
     Active Substance: LANSOPRAZOLE
     Route: 065
     Dates: start: 20140613, end: 20140718
  2. ADOFEED [Concomitant]
     Active Substance: FLURBIPROFEN
     Route: 062
     Dates: start: 20140827, end: 20160512
  3. CALONAL [Concomitant]
     Active Substance: ACETAMINOPHEN
     Dosage: DOSAGE IS UNCERTAIN
     Route: 048
     Dates: start: 20171120, end: 20171125
  4. FLOKISYL [Concomitant]
     Indication: MYALGIA
     Dosage: SINGLE USE
     Route: 048
     Dates: start: 20140608
  5. POLARAMINE [Concomitant]
     Active Substance: DEXCHLORPHENIRAMINE MALEATE
     Route: 065
     Dates: start: 20140612, end: 20140619
  6. NEOPHAGEN [Concomitant]
     Active Substance: GLYCYRRHIZIN
     Route: 042
     Dates: start: 20140612, end: 20140619
  7. NEOMALLERMIN-TR [Concomitant]
     Active Substance: DEXCHLORPHENIRAMINE MALEATE
     Dosage: TABLET 6 MG 2 TABLETS DIVIDED INTO 2 DOSES
     Route: 048
     Dates: start: 20140612, end: 20140613
  8. NEOMALLERMIN-TR [Concomitant]
     Active Substance: DEXCHLORPHENIRAMINE MALEATE
     Route: 065
     Dates: start: 20140612, end: 20140613
  9. ANTEBATE [Concomitant]
     Active Substance: BETAMETHASONE DIPROPIONATE
     Dosage: DOSAGE IS UNCERTAIN
     Route: 065
     Dates: start: 20140613, end: 20140616
  10. DERMOVATE [Concomitant]
     Active Substance: CLOBETASOL
     Route: 065
     Dates: start: 20140616, end: 20140630
  11. DOCETAXEL. [Suspect]
     Active Substance: DOCETAXEL
     Indication: BREAST CANCER METASTATIC
     Dosage: 86 MG
     Route: 041
     Dates: start: 20140605, end: 20140605
  12. LOXONIN [Concomitant]
     Active Substance: LOXOPROFEN SODIUM
     Indication: COMPRESSION FRACTURE
     Dosage: DOSAGE IS UNCERTAIN
     Route: 061
     Dates: start: 20140908, end: 20150222
  13. VALSARTAN. [Concomitant]
     Active Substance: VALSARTAN
     Dosage: DOSAGE IS UNCERTAIN
     Route: 048
     Dates: start: 20160405, end: 20160410
  14. VEEN-D [Concomitant]
     Active Substance: DEXTROSE
     Route: 065
     Dates: start: 20171120, end: 20171124
  15. MOHRUS TAPE [Concomitant]
     Active Substance: KETOPROFEN
     Indication: MYALGIA
     Dosage: PROPERLY
     Route: 061
     Dates: start: 20140610, end: 20140826
  16. DEXCHLORPHENIRAMINE MALEATE. [Concomitant]
     Active Substance: DEXCHLORPHENIRAMINE MALEATE
     Dosage: D-CHLORPHENIRAMINE MALEATE
     Route: 065
  17. BONALON [Concomitant]
     Active Substance: ALENDRONATE SODIUM
     Route: 048
     Dates: start: 20140715
  18. FLOMOX (CEFCAPENE PIVOXIL HYDROCHLORIDE) [Concomitant]
     Active Substance: CEFCAPENE PIVOXIL HYDROCHLORIDE
     Route: 048
     Dates: start: 20150129, end: 20150131
  19. VITACIMIN [Concomitant]
     Dosage: DOSAGE IS UNCERTAIN
     Route: 065
     Dates: start: 20171120, end: 20171124
  20. GLUCOSE [Concomitant]
     Active Substance: DEXTROSE
     Route: 065
     Dates: start: 20171121, end: 20171121
  21. GLYCYRRHIZIC ACID [Concomitant]
     Active Substance: GLYCYRRHIZIN
     Route: 041
  22. REBAMIPIDE [Concomitant]
     Active Substance: REBAMIPIDE
     Indication: GASTRITIS PROPHYLAXIS
     Route: 048
     Dates: start: 20131206
  23. BONALON [Concomitant]
     Active Substance: ALENDRONATE SODIUM
     Indication: OSTEOPOROSIS
     Route: 048
     Dates: start: 20140519, end: 20140616
  24. DEXART [Concomitant]
     Active Substance: DEXAMETHASONE SODIUM PHOSPHATE
     Route: 065
     Dates: start: 20140605, end: 20140605
  25. LOXONIN [Concomitant]
     Active Substance: LOXOPROFEN SODIUM
     Route: 048
     Dates: start: 20170418, end: 20170424
  26. ETIZOLAM [Concomitant]
     Active Substance: ETIZOLAM
     Indication: INSOMNIA
     Route: 048
  27. DECADRON [Concomitant]
     Active Substance: DEXAMETHASONE
     Dosage: DOSAGE IS UNCERTAIN
     Route: 048
     Dates: start: 20140605, end: 20140607
  28. FLOMOX (CEFCAPENE PIVOXIL HYDROCHLORIDE) [Concomitant]
     Active Substance: CEFCAPENE PIVOXIL HYDROCHLORIDE
     Route: 048
     Dates: start: 20170626, end: 20170715
  29. VEEN-D [Concomitant]
     Active Substance: DEXTROSE
     Route: 065
     Dates: start: 20170626, end: 20170626
  30. FLOKISYL [Concomitant]
     Indication: MYALGIA
     Dosage: SINGLE USE
     Route: 048
     Dates: start: 20140608, end: 20140609
  31. MOHRUS TAPE [Concomitant]
     Active Substance: KETOPROFEN
     Dosage: PROPERLY
     Route: 061
     Dates: start: 20160418, end: 20161004
  32. CLARITIN REDITABS [Concomitant]
     Active Substance: LORATADINE
     Route: 048
     Dates: start: 20140613, end: 20140630
  33. HIRUDOID OINTMENT [Concomitant]
     Route: 003
     Dates: start: 20150521, end: 20150615
  34. PREDNISOLONE. [Concomitant]
     Active Substance: PREDNISOLONE
     Dosage: 4 TABLES DIVIDED INTO 2 DOSE
     Route: 065
     Dates: start: 20140616, end: 20140621
  35. PERTUZUMAB. [Suspect]
     Active Substance: PERTUZUMAB
     Indication: BREAST CANCER METASTATIC
     Dosage: STRENGTH: 420 MG/14 ML
     Route: 041
     Dates: start: 20140605, end: 20140605
  36. REBAMIPIDE [Concomitant]
     Active Substance: REBAMIPIDE
     Dosage: DOSAGE IS UNCERTAIN
     Route: 048
     Dates: start: 20131206
  37. POLARAMINE [Concomitant]
     Active Substance: DEXCHLORPHENIRAMINE MALEATE
     Route: 065
     Dates: start: 20140612, end: 20140619
  38. ATOLANT [Concomitant]
     Route: 065
     Dates: start: 20140619, end: 20150615
  39. FLOMOX (CEFCAPENE PIVOXIL HYDROCHLORIDE) [Concomitant]
     Active Substance: CEFCAPENE PIVOXIL HYDROCHLORIDE
     Dosage: DOSAGE IS UNCERTAIN
     Route: 048
     Dates: start: 20171120, end: 20171125
  40. VITACIMIN [Concomitant]
     Dosage: DOSAGE IS UNCERTAIN
     Route: 065
     Dates: start: 20170626, end: 20170626
  41. CALONAL [Concomitant]
     Active Substance: ACETAMINOPHEN
     Dosage: DOSAGE IS UNCERTAIN
     Route: 048
     Dates: start: 20170626, end: 20170715
  42. SOLACET F [Concomitant]
     Route: 042
     Dates: start: 20140609, end: 20140609
  43. RESTAMIN KOWA [Concomitant]
     Route: 003
     Dates: start: 20140611, end: 20140612
  44. NEOPHAGEN [Concomitant]
     Active Substance: GLYCYRRHIZIN
     Route: 065
     Dates: start: 20140612, end: 20140619
  45. LOXONIN [Concomitant]
     Active Substance: LOXOPROFEN SODIUM
     Dosage: 1 DF
     Route: 061
     Dates: start: 20160122
  46. ALINAMIN F [Concomitant]
     Active Substance: FURSULTIAMINE HYDROCHLORIDE
     Route: 048
     Dates: start: 20140917
  47. SELBEX [Concomitant]
     Active Substance: TEPRENONE
     Route: 048
     Dates: start: 20160418, end: 20160420
  48. SHAKUYAKUKANZOTO [Concomitant]
     Active Substance: HERBALS
     Indication: MYALGIA
     Route: 048
     Dates: start: 20140609, end: 20140612
  49. SOLACET D [Concomitant]
     Indication: NAUSEA
     Route: 042
     Dates: start: 20140610, end: 20140610
  50. ALLELOCK [Concomitant]
     Active Substance: OLOPATADINE HYDROCHLORIDE
     Route: 065
     Dates: start: 20140613, end: 20140630
  51. HIRUDOID OINTMENT [Concomitant]
     Route: 003
     Dates: start: 20140613, end: 20140630
  52. CELECOX [Concomitant]
     Active Substance: CELECOXIB
     Indication: COMPRESSION FRACTURE
     Route: 048
     Dates: start: 20131206
  53. TRASTUZUMAB. [Suspect]
     Active Substance: TRASTUZUMAB
     Route: 041
     Dates: start: 20140625
  54. PERTUZUMAB. [Suspect]
     Active Substance: PERTUZUMAB
     Dosage: STRENGTH: 420 MG/14 ML
     Route: 041
     Dates: start: 20140625
  55. DEXART [Concomitant]
     Active Substance: DEXAMETHASONE SODIUM PHOSPHATE
     Route: 048
     Dates: start: 20140605, end: 20140606
  56. LOXOPROFEN NA [Concomitant]
     Active Substance: LOXOPROFEN SODIUM
     Indication: COMPRESSION FRACTURE
     Dosage: DOSGE IS UNCERTAIN
     Route: 061
     Dates: start: 20150223, end: 20160121
  57. ANTEBATE [Concomitant]
     Active Substance: BETAMETHASONE DIPROPIONATE
     Route: 003
     Dates: start: 20150521, end: 20150615
  58. ANTEBATE [Concomitant]
     Active Substance: BETAMETHASONE DIPROPIONATE
     Route: 003
     Dates: start: 20170407, end: 20170501
  59. CALONAL [Concomitant]
     Active Substance: ACETAMINOPHEN
     Indication: MYALGIA
     Dosage: SINGLE USE
     Route: 048
     Dates: start: 20140609, end: 20140627
  60. TRASTUZUMAB. [Suspect]
     Active Substance: TRASTUZUMAB
     Indication: BREAST CANCER METASTATIC
     Dosage: 243 MG
     Route: 041
     Dates: start: 20140605, end: 20140605
  61. BONALON [Concomitant]
     Active Substance: ALENDRONATE SODIUM
     Dosage: DOSAGE IS UNCERTAIN
     Route: 065
     Dates: start: 20140627, end: 20140708
  62. PALGIN (JAPAN) [Concomitant]
     Indication: INSOMNIA
     Dosage: SINGLE USE
     Route: 048
     Dates: start: 20140604
  63. LOXOPROFEN NA [Concomitant]
     Active Substance: LOXOPROFEN SODIUM
     Dosage: 1-2 TIMES A DAY
     Route: 061
     Dates: start: 20161012
  64. OZEX (JAPAN) [Concomitant]
     Active Substance: TOSUFLOXACIN TOSYLATE
     Dosage: DOSAGE IS UNCERTAIN
     Route: 065
     Dates: start: 20150203, end: 20150205

REACTIONS (4)
  - Myositis [Recovered/Resolved]
  - Drug eruption [Recovered/Resolved]
  - Myalgia [Recovered/Resolved]
  - Nausea [Recovered/Resolved]

NARRATIVE: CASE EVENT DATE: 20140608
